FAERS Safety Report 4596462-X (Version None)
Quarter: 2005Q1

REPORT INFORMATION
  Report Type: 
  Country: None (occurrence: None)
  Receive Date: 20050302
  Receipt Date: 20050223
  Transmission Date: 20050727
  Serious: Yes (Hospitalization)
  Sender: FDA-Public Use
  Company Number: GB-JNJFOC-20050205507

PATIENT
  Sex: Female
  Weight: 53 kg

DRUGS (6)
  1. REMICADE [Suspect]
     Indication: RHEUMATOID ARTHRITIS
     Route: 042
  2. METHOTREXATE [Concomitant]
  3. SULINDAC [Concomitant]
  4. FOSAMAX [Concomitant]
  5. OXYCODONE HCL [Concomitant]
  6. LANSOPRAZOLE [Concomitant]

REACTIONS (1)
  - GASTROINTESTINAL DISORDER [None]
